FAERS Safety Report 5413521-X (Version None)
Quarter: 2007Q3

REPORT INFORMATION
  Report Type: 
  Country: None (occurrence: None)
  Receive Date: 20070814
  Receipt Date: 20070809
  Transmission Date: 20080115
  Serious: Yes (Death, Hospitalization)
  Sender: FDA-Public Use
  Company Number: IT-AVENTIS-200711850EU

PATIENT
  Age: 85 Year
  Sex: Female

DRUGS (2)
  1. LASIX [Suspect]
     Route: 048
     Dates: start: 20060201
  2. ALLOPURINOL [Suspect]
     Route: 048
     Dates: start: 20070219, end: 20070407

REACTIONS (2)
  - ERYTHEMA [None]
  - TOXIC EPIDERMAL NECROLYSIS [None]
